FAERS Safety Report 12729681 (Version 4)
Quarter: 2016Q4

REPORT INFORMATION
  Report Type: Report from Study
  Country: NL (occurrence: NL)
  Receive Date: 20160909
  Receipt Date: 20161206
  Transmission Date: 20170207
  Serious: Yes (Hospitalization, Other)
  Sender: FDA-Public Use
  Company Number: NL-INCYTE CORPORATION-2016IN005288

PATIENT
  Age: 66 Year
  Sex: Male

DRUGS (3)
  1. NORTRIPTYLINE [Concomitant]
     Active Substance: NORTRIPTYLINE
     Indication: PRODUCT USED FOR UNKNOWN INDICATION
     Dosage: 25 MG, QD
     Route: 065
     Dates: start: 20140423
  2. JAKAVI [Suspect]
     Active Substance: RUXOLITINIB
     Indication: MYELOFIBROSIS
     Dosage: 20 MG, BID
     Route: 048
     Dates: start: 201302
  3. ASCAL [Concomitant]
     Active Substance: CARBASPIRIN
     Indication: PRODUCT USED FOR UNKNOWN INDICATION
     Dosage: 100 M, QD
     Route: 065
     Dates: start: 20140423

REACTIONS (22)
  - Neuropathy peripheral [Recovering/Resolving]
  - Platelet count decreased [Unknown]
  - Metamyelocyte count increased [Unknown]
  - Myelocyte count increased [Unknown]
  - Blood lactate dehydrogenase increased [Unknown]
  - Haematocrit decreased [Unknown]
  - Muscle atrophy [Unknown]
  - Glomerular filtration rate decreased [Unknown]
  - Lumbar radiculopathy [Recovering/Resolving]
  - Haemoglobin decreased [Unknown]
  - White blood cell count increased [Unknown]
  - Sciatic nerve neuropathy [Recovering/Resolving]
  - Neutrophil count increased [Unknown]
  - Gamma-glutamyltransferase increased [Unknown]
  - Basophil count increased [Unknown]
  - Muscle contractions involuntary [Unknown]
  - Mean cell haemoglobin decreased [Unknown]
  - Red blood cell count decreased [Unknown]
  - Monocyte count increased [Unknown]
  - Lymphocyte morphology abnormal [Unknown]
  - Blood creatinine increased [Unknown]
  - Pain [Unknown]

NARRATIVE: CASE EVENT DATE: 20160811
